FAERS Safety Report 7372385-8 (Version None)
Quarter: 2011Q1

REPORT INFORMATION
  Report Type: 
  Country: None (occurrence: None)
  Receive Date: 20110324
  Receipt Date: 20110314
  Transmission Date: 20110831
  Serious: Yes (Other)
  Sender: FDA-Public Use
  Company Number: US-RB-023339-11

PATIENT
  Age: 74 Year
  Sex: Female

DRUGS (1)
  1. MUCINEX UNKNOWN TYPE [Suspect]
     Dosage: PATIENT TOOK TWO TABLETS ON 10-MAR-2011 AND TWO TABLETS ON 11-MAR-2011.
     Route: 048

REACTIONS (2)
  - HYPERTENSION [None]
  - HYPOAESTHESIA [None]
